FAERS Safety Report 5267380-9 (Version None)
Quarter: 2007Q1

REPORT INFORMATION
  Report Type: 
  Country: None (occurrence: None)
  Receive Date: 20070316
  Receipt Date: 20070305
  Transmission Date: 20070707
  Serious: Yes (Death)
  Sender: FDA-Public Use
  Company Number: JP-ROCHE-484921

PATIENT
  Age: 25 Year
  Sex: Male

DRUGS (5)
  1. TAMIFLU [Suspect]
     Indication: INFLUENZA
     Route: 048
     Dates: start: 20070201, end: 20070205
  2. ZITHROMAC [Suspect]
     Indication: DRUG USE FOR UNKNOWN INDICATION
     Route: 048
     Dates: start: 20070201, end: 20070203
  3. PL [Concomitant]
     Route: 048
     Dates: start: 20070131, end: 20070203
  4. LOXONIN [Concomitant]
     Dosage: LOXOPROFEN WAS STOPPED ON 03 FEB 07 AND RESTARTED ON 5 FEB 07 WITH THE SAME DOSAGE. REPORTED AS LAX+
     Route: 048
     Dates: start: 20070131, end: 20070206
  5. FLOMOX [Suspect]
     Indication: INFECTION PROPHYLAXIS
     Dosage: GENERIC REPORTED AS CEFCAPENE PIVOXIL HYDROCHLORIDE.
     Route: 048
     Dates: start: 20070205, end: 20070206

REACTIONS (2)
  - DIARRHOEA [None]
  - MYOCARDIAL ISCHAEMIA [None]
